FAERS Safety Report 5168510-X (Version None)
Quarter: 2006Q4

REPORT INFORMATION
  Report Type: 
  Country: None (occurrence: None)
  Receive Date: 20061208
  Receipt Date: 20061130
  Transmission Date: 20070319
  Serious: Yes (Hospitalization)
  Sender: FDA-Public Use
  Company Number: DE-BOEHRINGER INGELHEIM PHARMACEUTICALS, INC.-2006-DE-06380DE

PATIENT
  Age: 61 Year
  Sex: Male
  Weight: 106 kg

DRUGS (7)
  1. SPIRIVA [Suspect]
     Indication: CHRONIC OBSTRUCTIVE PULMONARY DISEASE
     Route: 055
     Dates: start: 20060403
  2. TARKA [Concomitant]
     Indication: HYPERTENSION
  3. ALLVORAN [Concomitant]
     Indication: BONE PAIN
  4. PANTOZOL [Concomitant]
     Indication: PROPHYLAXIS
  5. BETA-2-AGONIST LONG-ACTING [Concomitant]
     Indication: RESPIRATORY THERAPY
  6. CORTICOID INHALATIVE [Concomitant]
     Indication: RESPIRATORY THERAPY
     Route: 055
     Dates: start: 20060403
  7. THEOPHYLLINE [Concomitant]
     Indication: RESPIRATORY THERAPY

REACTIONS (2)
  - ABDOMINAL NEOPLASM [None]
  - CARDIOPULMONARY FAILURE [None]
